FAERS Safety Report 26089798 (Version 1)
Quarter: 2025Q4

REPORT INFORMATION
  Report Type: Spontaneous
  Country: US (occurrence: US)
  Receive Date: 20251125
  Receipt Date: 20251125
  Transmission Date: 20260118
  Serious: No
  Sender: AUROBINDO
  Company Number: US-AUROBINDO-AUR-APL-2025-028752

PATIENT
  Sex: Female

DRUGS (1)
  1. PRASUGREL [Suspect]
     Active Substance: PRASUGREL
     Indication: Product used for unknown indication
     Dosage: UNK

REACTIONS (2)
  - Product taste abnormal [Unknown]
  - Therapy cessation [Unknown]
